FAERS Safety Report 9643255 (Version 2)
Quarter: 2013Q4

REPORT INFORMATION
  Report Type: Spontaneous
  Country: IT (occurrence: IT)
  Receive Date: 20131024
  Receipt Date: 20131211
  Transmission Date: 20140711
  Serious: Yes (Hospitalization, Other)
  Sender: FDA-Public Use
  Company Number: IT-PFIZER INC-2013299761

PATIENT
  Age: 61 Year
  Sex: Female

DRUGS (3)
  1. SERTRALINE HCL [Suspect]
     Indication: DEPRESSION
     Dosage: 100 MG, DAILY
     Route: 048
     Dates: start: 20120101, end: 20131003
  2. TAVOR [Suspect]
     Indication: DEPRESSION
     Dosage: 2.5 MG, DAILY
     Route: 048
     Dates: start: 20120101, end: 20131003
  3. TALOFEN [Suspect]
     Indication: DEPRESSION
     Dosage: 50 GTT, DAILY
     Route: 048
     Dates: start: 20120101, end: 20131003

REACTIONS (5)
  - Toxic encephalopathy [Recovering/Resolving]
  - Hypochloraemia [Recovering/Resolving]
  - Hyponatraemia [Recovering/Resolving]
  - Abnormal behaviour [Recovering/Resolving]
  - Off label use [Not Recovered/Not Resolved]
